FAERS Safety Report 12305474 (Version 1)
Quarter: 2016Q2

REPORT INFORMATION
  Report Type: Spontaneous
  Country: IN (occurrence: IN)
  Receive Date: 20160426
  Receipt Date: 20160426
  Transmission Date: 20160815
  Serious: Yes (Other)
  Sender: FDA-Public Use
  Company Number: PHHY2016IN052122

PATIENT
  Age: 54 Year
  Sex: Female

DRUGS (3)
  1. ZOLEDRONATE [Suspect]
     Active Substance: ZOLEDRONIC ACID
     Indication: BREAST CANCER METASTATIC
     Route: 065
     Dates: start: 201508, end: 201511
  2. LETROZOLE. [Suspect]
     Active Substance: LETROZOLE
     Indication: BREAST CANCER METASTATIC
     Route: 065
     Dates: start: 201508, end: 201511
  3. LAPATINIB [Suspect]
     Active Substance: LAPATINIB
     Indication: BREAST CANCER METASTATIC
     Route: 065
     Dates: start: 201508, end: 201511

REACTIONS (9)
  - Pain in extremity [Unknown]
  - Breast cancer metastatic [Unknown]
  - No therapeutic response [Unknown]
  - Malignant neoplasm progression [Unknown]
  - Brachial plexopathy [Unknown]
  - Chest pain [Unknown]
  - Breast necrosis [Unknown]
  - Muscular weakness [Recovering/Resolving]
  - Axillary pain [Unknown]

NARRATIVE: CASE EVENT DATE: 201511
